FAERS Safety Report 25686309 (Version 1)
Quarter: 2025Q3

REPORT INFORMATION
  Report Type: Spontaneous
  Country: US (occurrence: US)
  Receive Date: 20250815
  Receipt Date: 20250815
  Transmission Date: 20251021
  Serious: Yes (Other)
  Sender: PFIZER
  Company Number: US-PFIZER INC-PV202500098934

PATIENT
  Age: 65 Year
  Sex: Male

DRUGS (1)
  1. VYNDAQEL [Suspect]
     Active Substance: TAFAMIDIS MEGLUMINE

REACTIONS (2)
  - Nephropathy [Unknown]
  - Illness [Unknown]
